FAERS Safety Report 4394656-X (Version None)
Quarter: 2004Q3

REPORT INFORMATION
  Report Type: 
  Country: None (occurrence: None)
  Receive Date: 20040707
  Receipt Date: 20040622
  Transmission Date: 20050211
  Serious: Yes (Hospitalization)
  Sender: FDA-Public Use
  Company Number: US-JNJFOC-20040100610

PATIENT
  Age: 56 Year
  Sex: Female
  Weight: 81.8 kg

DRUGS (28)
  1. REMICADE [Suspect]
     Indication: RHEUMATOID ARTHRITIS
     Dosage: 500 MG, INTRAVENOUS
     Route: 042
     Dates: start: 20030101
  2. REMICADE [Suspect]
     Indication: RHEUMATOID ARTHRITIS
     Dosage: 500 MG, INTRAVENOUS
     Route: 042
     Dates: start: 20031219
  3. REMICADE [Suspect]
     Indication: RHEUMATOID ARTHRITIS
     Dosage: 500 MG, INTRAVENOUS
     Route: 042
     Dates: start: 20040105
  4. ALBUTEROL [Concomitant]
  5. ARAVA [Concomitant]
  6. CALCIUM (CALCIUM) [Concomitant]
  7. COMBIVENT [Concomitant]
  8. FOLIC ACID [Concomitant]
  9. FOSAMAX [Concomitant]
  10. IMITREX [Concomitant]
  11. LEXAPRIL (BROMAZEPAM) [Concomitant]
  12. MAXZIDE [Concomitant]
  13. OXYCONTIN [Concomitant]
  14. OXYBUTYNIN [Concomitant]
  15. PREDNISONE TAB [Concomitant]
  16. PROVENTIL [Concomitant]
  17. SERAX [Concomitant]
  18. SINGULAIR [Concomitant]
  19. VASOTEC [Concomitant]
  20. ZYRTEC [Concomitant]
  21. COLACE (DOCUSATE SODIUM) [Concomitant]
  22. LEXAPRO [Concomitant]
  23. MILK OF MAGNESIA (MAGNESIUM HYDROXIDE) [Concomitant]
  24. OXYBUTYNIN CHLORIDE (OXYBUTYNIN) [Concomitant]
  25. PRILOSEC [Concomitant]
  26. TRIAMTERENE-HYDROCHLOROTHIAZID (DYAZIDE) [Concomitant]
  27. TYLENOL W/ CODEINE NO. 3 [Concomitant]
  28. PROVERA [Concomitant]

REACTIONS (30)
  - ARTHRITIS [None]
  - BACK PAIN [None]
  - BLOOD PRESSURE DECREASED [None]
  - BODY TEMPERATURE INCREASED [None]
  - BONE PAIN [None]
  - CHILLS [None]
  - CYST [None]
  - DIFFICULTY IN WALKING [None]
  - DRUG EFFECT DECREASED [None]
  - FEELING COLD [None]
  - HEADACHE [None]
  - HEART RATE INCREASED [None]
  - INCISION SITE COMPLICATION [None]
  - INFECTION [None]
  - INFLUENZA [None]
  - INFUSION RELATED REACTION [None]
  - INTERVERTEBRAL DISC PROTRUSION [None]
  - LUMBAR SPINAL STENOSIS [None]
  - MASS [None]
  - MUSCULAR WEAKNESS [None]
  - NAUSEA [None]
  - OEDEMA [None]
  - OEDEMA PERIPHERAL [None]
  - PNEUMONIA [None]
  - POSTOPERATIVE WOUND COMPLICATION [None]
  - SCAB [None]
  - SENSORY DISTURBANCE [None]
  - SEROMA [None]
  - THERAPY NON-RESPONDER [None]
  - VOMITING [None]
